FAERS Safety Report 23914470 (Version 1)
Quarter: 2024Q2

REPORT INFORMATION
  Report Type: Spontaneous
  Country: US (occurrence: US)
  Receive Date: 20240529
  Receipt Date: 20240529
  Transmission Date: 20240716
  Serious: Yes (Hospitalization, Other)
  Sender: FDA-Public Use
  Company Number: US-SUN PHARMACEUTICAL INDUSTRIES LTD-2024R1-448257

PATIENT
  Age: 58 Year
  Sex: Female

DRUGS (3)
  1. ALENDRONATE [Suspect]
     Active Substance: ALENDRONATE SODIUM
     Indication: Osteoporosis
     Route: 065
  2. CHOLECALCIFEROL [Suspect]
     Active Substance: CHOLECALCIFEROL
     Indication: Osteoporosis
     Route: 065
  3. PHOSPHORUS [Suspect]
     Active Substance: PHOSPHORUS
     Indication: Osteoporosis
     Route: 065

REACTIONS (1)
  - Osteomalacia [Recovering/Resolving]
